FAERS Safety Report 7401053-9 (Version None)
Quarter: 2011Q1

REPORT INFORMATION
  Report Type: 
  Country: None (occurrence: None)
  Receive Date: 20110329
  Receipt Date: 20110315
  Transmission Date: 20110831
  Serious: Yes (Other)
  Sender: FDA-Public Use
  Company Number: FK201100505

PATIENT
  Sex: Female

DRUGS (3)
  1. ARIMIDEX (ANASTROZOLE) (ANASTROZOLE) [Suspect]
     Indication: BREAST CANCER
  2. CYTOXAN [Suspect]
     Indication: BREAST CANCER
  3. DOXORUBICIN (MANUFACTURER UNKNOWN) (DOXORUBICIN HYDROCHLORIDE) [Suspect]
     Indication: BREAST CANCER

REACTIONS (2)
  - OSTEOPOROSIS [None]
  - HIP FRACTURE [None]
